FAERS Safety Report 9162154 (Version 1)
Quarter: 2013Q1

REPORT INFORMATION
  Report Type: Spontaneous
  Country: GB (occurrence: None)
  Receive Date: 20130220
  Receipt Date: 20130220
  Transmission Date: 20140127
  Serious: Yes (Hospitalization)
  Sender: FDA-Public Use
  Company Number: 2013ND000002

PATIENT
  Sex: Male

DRUGS (5)
  1. TOTECT [Suspect]
     Route: 042
     Dates: start: 20130130
  2. DOXORUBICIN (DOXORUBICIN) (DOXORUBICIN) [Suspect]
     Route: 042
     Dates: start: 201301
  3. RITUXIMAB (RITUXIMAB) [Concomitant]
  4. VINCRISTINE [Concomitant]
  5. SALINE [Concomitant]

REACTIONS (1)
  - Sepsis [None]
